FAERS Safety Report 23438327 (Version 1)
Quarter: 2024Q1

REPORT INFORMATION
  Report Type: Spontaneous
  Country: US (occurrence: US)
  Receive Date: 20240124
  Receipt Date: 20240124
  Transmission Date: 20240410
  Serious: Yes (Other)
  Sender: FDA-Public Use
  Company Number: US-TEVA-VS-3147928

PATIENT
  Age: 56 Year

DRUGS (1)
  1. PREDNISONE [Suspect]
     Active Substance: PREDNISONE
     Indication: Colitis ulcerative
     Route: 065

REACTIONS (3)
  - Endocrine ophthalmopathy [Unknown]
  - Unmasking of previously unidentified disease [Unknown]
  - Treatment noncompliance [Unknown]
